FAERS Safety Report 9732506 (Version 3)
Quarter: 2014Q1

REPORT INFORMATION
  Report Type: Spontaneous
  Country: FR (occurrence: FR)
  Receive Date: 20131205
  Receipt Date: 20140129
  Transmission Date: 20141002
  Serious: Yes (Other)
  Sender: FDA-Public Use
  Company Number: FR-JNJFOC-20131116697

PATIENT
  Age: 29 Year
  Sex: Male
  Weight: 102 kg

DRUGS (1)
  1. STELARA [Suspect]
     Indication: PSORIASIS
     Route: 058
     Dates: start: 20131104, end: 20131104

REACTIONS (2)
  - Latent tuberculosis [Unknown]
  - Self-medication [Unknown]
